FAERS Safety Report 4279736-1 (Version None)
Quarter: 2004Q1

REPORT INFORMATION
  Report Type: 
  Country: None (occurrence: None)
  Receive Date: 20040127
  Receipt Date: 20040121
  Transmission Date: 20041129
  Serious: Yes (Other)
  Sender: FDA-Public Use
  Company Number: WAES 0401GBR00178

PATIENT

DRUGS (1)
  1. ARAMINE [Suspect]
     Route: 051

REACTIONS (1)
  - MEDICATION ERROR [None]
